FAERS Safety Report 24744625 (Version 2)
Quarter: 2024Q4

REPORT INFORMATION
  Report Type: Report from Study
  Country: US (occurrence: US)
  Receive Date: 20241217
  Receipt Date: 20241226
  Transmission Date: 20250114
  Serious: Yes (Other)
  Sender: EMD SERONO INC
  Company Number: US-Merck Healthcare KGaA-2024065455

PATIENT
  Sex: Female

DRUGS (1)
  1. MAVENCLAD [Suspect]
     Active Substance: CLADRIBINE
     Indication: Multiple sclerosis
     Dosage: YEAR ONE THERAPY
     Dates: start: 20240205, end: 20240308

REACTIONS (12)
  - Myelosuppression [Unknown]
  - Laboratory test abnormal [Unknown]
  - Lymphocyte count decreased [Unknown]
  - Multiple sclerosis relapse [Unknown]
  - Weight decreased [Unknown]
  - Urinary tract infection [Unknown]
  - Cognitive disorder [Unknown]
  - Condition aggravated [Unknown]
  - Speech disorder [Unknown]
  - Gait inability [Unknown]
  - General physical health deterioration [Unknown]
  - Impaired driving ability [Unknown]
